FAERS Safety Report 18677103 (Version 1)
Quarter: 2020Q4

REPORT INFORMATION
  Report Type: Spontaneous
  Country: US (occurrence: US)
  Receive Date: 20201229
  Receipt Date: 20201229
  Transmission Date: 20210114
  Serious: Yes (Other)
  Sender: FDA-Public Use
  Company Number: US-ALLERGAN-2049568US

PATIENT
  Sex: Female

DRUGS (2)
  1. FLUOROMETHOLONE, 0.1% [Suspect]
     Active Substance: FLUOROMETHOLONE
     Indication: PROPHYLAXIS AGAINST TRANSPLANT REJECTION
     Dosage: UNK
     Dates: start: 20201212
  2. SIMVASTATIN. [Concomitant]
     Active Substance: SIMVASTATIN

REACTIONS (5)
  - Foreign body sensation in eyes [Unknown]
  - Product complaint [Unknown]
  - Eye irritation [Unknown]
  - Abnormal sensation in eye [Unknown]
  - Corneal graft rejection [Unknown]

NARRATIVE: CASE EVENT DATE: 202012
